FAERS Safety Report 14781469 (Version 1)
Quarter: 2018Q2

REPORT INFORMATION
  Report Type: Spontaneous
  Country: US (occurrence: US)
  Receive Date: 20180419
  Receipt Date: 20180419
  Transmission Date: 20180711
  Serious: Yes (Hospitalization, Other)
  Sender: FDA-Public Use
  Company Number: US-ALEMBIC PHARMACUETICALS LIMITED-2018SCAL000273

PATIENT

DRUGS (1)
  1. LINEZOLID. [Suspect]
     Active Substance: LINEZOLID
     Indication: STAPHYLOCOCCAL BACTERAEMIA
     Dosage: UNK

REACTIONS (5)
  - Thrombocytopenia [Recovering/Resolving]
  - Syncope [Unknown]
  - Anion gap increased [Recovering/Resolving]
  - Lactic acidosis [Recovering/Resolving]
  - Nausea [Recovered/Resolved]
